FAERS Safety Report 25873513 (Version 1)
Quarter: 2025Q4

REPORT INFORMATION
  Report Type: Spontaneous
  Country: US (occurrence: US)
  Receive Date: 20251002
  Receipt Date: 20251002
  Transmission Date: 20260118
  Serious: Yes (Other)
  Sender: NOVO NORDISK
  Company Number: US-NOVOPROD-1531524

PATIENT

DRUGS (1)
  1. SAXENDA [Suspect]
     Active Substance: LIRAGLUTIDE
     Indication: Product used for unknown indication
     Dosage: UNK

REACTIONS (6)
  - Graves^ disease [Unknown]
  - Nail operation [Unknown]
  - Hypertension [Unknown]
  - Emphysema [Unknown]
  - COVID-19 [Unknown]
  - Irritable bowel syndrome [Unknown]
